FAERS Safety Report 16613321 (Version 1)
Quarter: 2019Q3

REPORT INFORMATION
  Report Type: Spontaneous
  Country: US (occurrence: US)
  Receive Date: 20190722
  Receipt Date: 20190722
  Transmission Date: 20191004
  Serious: No
  Sender: FDA-Public Use
  Company Number: None

PATIENT
  Age: 57 Year
  Sex: Female
  Weight: 90 kg

DRUGS (11)
  1. AIMOVIG [Suspect]
     Active Substance: ERENUMAB-AOOE
     Indication: MIGRAINE
     Dosage: ?          QUANTITY:1 INJECTION(S);OTHER FREQUENCY:MONTHLY;?
     Route: 058
     Dates: start: 20190301, end: 20190701
  2. OMELRAZOLE [Concomitant]
  3. MAGNESIUM MALATE. [Concomitant]
     Active Substance: MAGNESIUM MALATE
  4. PLAQUENIL [Concomitant]
     Active Substance: HYDROXYCHLOROQUINE SULFATE
  5. ADVIL [Concomitant]
     Active Substance: IBUPROFEN
  6. DULOXETINE. [Concomitant]
     Active Substance: DULOXETINE
  7. LEVOTHYROXINE. [Concomitant]
     Active Substance: LEVOTHYROXINE
  8. BENLYSTA [Concomitant]
     Active Substance: BELIMUMAB
  9. BUTALBITOL [Concomitant]
  10. MULTIVITAMIN [Concomitant]
     Active Substance: VITAMINS
  11. CARAFATE [Concomitant]
     Active Substance: SUCRALFATE

REACTIONS (7)
  - Neck pain [None]
  - Spinal pain [None]
  - Constipation [None]
  - Mobility decreased [None]
  - Injection site discomfort [None]
  - Musculoskeletal pain [None]
  - Arthralgia [None]

NARRATIVE: CASE EVENT DATE: 20190719
